FAERS Safety Report 5256681-6 (Version None)
Quarter: 2007Q1

REPORT INFORMATION
  Report Type: 
  Country: None (occurrence: None)
  Receive Date: 20070306
  Receipt Date: 20070227
  Transmission Date: 20070707
  Serious: Yes (Hospitalization, Other)
  Sender: FDA-Public Use
  Company Number: US-PFIZER INC-2006141004

PATIENT
  Sex: Male
  Weight: 97.5 kg

DRUGS (12)
  1. ARTHROTEC [Suspect]
     Indication: ARTHRITIS
     Route: 048
     Dates: start: 20011001, end: 20061218
  2. VOLTAREN-XR [Suspect]
     Indication: PAIN
     Route: 048
     Dates: start: 20060516, end: 20060601
  3. TEGRETOL [Suspect]
     Indication: CONVULSION
     Route: 048
  4. TYLENOL W/ CODEINE NO. 3 [Concomitant]
     Indication: PAIN
  5. VASOTEC [Concomitant]
     Dosage: DAILY DOSE:10MG
  6. NORVASC [Concomitant]
  7. MONTELUKAST SODIUM [Concomitant]
  8. ADVAIR DISKUS 100/50 [Concomitant]
  9. ALBUTEROL [Concomitant]
  10. LAMICTAL [Concomitant]
  11. PRAVACHOL [Concomitant]
     Dosage: DAILY DOSE:20MG
  12. LASIX [Concomitant]
     Dosage: DAILY DOSE:80MG
     Route: 048

REACTIONS (9)
  - CEREBROVASCULAR ACCIDENT [None]
  - CONVULSION [None]
  - DIARRHOEA HAEMORRHAGIC [None]
  - DRUG INEFFECTIVE [None]
  - DYSPNOEA [None]
  - INTRACRANIAL ANEURYSM [None]
  - MALAISE [None]
  - OEDEMA [None]
  - UPPER GASTROINTESTINAL HAEMORRHAGE [None]
